FAERS Safety Report 9972990 (Version 1)
Quarter: 2014Q1

REPORT INFORMATION
  Report Type: Spontaneous
  Country: US (occurrence: US)
  Receive Date: 20140306
  Receipt Date: 20140306
  Transmission Date: 20141002
  Serious: No
  Sender: FDA-Public Use
  Company Number: US-PFIZER INC-2014062386

PATIENT
  Age: 58 Year
  Sex: Female
  Weight: 77.1 kg

DRUGS (3)
  1. EFFEXOR XR [Suspect]
     Indication: DEPRESSION
     Dosage: 75 MG, DAILY
     Dates: start: 2000
  2. EFFEXOR XR [Suspect]
     Dosage: 100 MG, DAILY
  3. NEXIUM [Concomitant]
     Indication: GASTROOESOPHAGEAL REFLUX DISEASE
     Dosage: UNK, 1X/DAY

REACTIONS (9)
  - Anger [Unknown]
  - Screaming [Unknown]
  - Crying [Unknown]
  - Palpitations [Unknown]
  - Headache [Unknown]
  - Decreased appetite [Unknown]
  - Gait disturbance [Unknown]
  - Eye disorder [Unknown]
  - Drug withdrawal syndrome [Unknown]
